FAERS Safety Report 8775657 (Version 1)
Quarter: 2012Q4

REPORT INFORMATION
  Report Type: 
  Country: BR (occurrence: BR)
  Receive Date: 20120910
  Receipt Date: 20120910
  Transmission Date: 20130627
  Serious: Yes (Death)
  Sender: FDA-Public Use
  Company Number: BR-JNJFOC-20120902924

PATIENT
  Sex: Female

DRUGS (1)
  1. ULTRACET [Suspect]
     Indication: FIBROMYALGIA
     Route: 048
     Dates: start: 2012, end: 2012

REACTIONS (1)
  - Sudden death [Fatal]
